FAERS Safety Report 6737702-8 (Version None)
Quarter: 2010Q2

REPORT INFORMATION
  Report Type: 
  Country: None (occurrence: None)
  Receive Date: 20100524
  Receipt Date: 20100510
  Transmission Date: 20101027
  Serious: Yes (Other)
  Sender: FDA-Public Use
  Company Number: PHHY2010US30085

PATIENT
  Sex: Female

DRUGS (2)
  1. VIVELLE-DOT [Suspect]
     Dosage: UNK
     Route: 062
     Dates: end: 20100201
  2. ASPIRIN [Concomitant]

REACTIONS (9)
  - BACK PAIN [None]
  - COLD SWEAT [None]
  - DEPRESSION [None]
  - DISORIENTATION [None]
  - HEADACHE [None]
  - HOT FLUSH [None]
  - HYPERHIDROSIS [None]
  - IMPAIRED DRIVING ABILITY [None]
  - SKIN IRRITATION [None]
